FAERS Safety Report 7426655-5 (Version None)
Quarter: 2011Q2

REPORT INFORMATION
  Report Type: 
  Country: None (occurrence: None)
  Receive Date: 20110420
  Receipt Date: 20110102
  Transmission Date: 20111010
  Serious: No
  Sender: FDA-Public Use
  Company Number: US-TEVA-262120USA

PATIENT
  Age: 24 Year
  Sex: Female
  Weight: 53.572 kg

DRUGS (2)
  1. PLAN B ONE-STEP [Suspect]
     Indication: POST COITAL CONTRACEPTION
     Dosage: 1.5 MILLIGRAM;
     Route: 048
     Dates: start: 20101227, end: 20101227
  2. LUTERA [Concomitant]
     Indication: CONTRACEPTION
     Route: 048
     Dates: start: 20060101

REACTIONS (1)
  - MENSTRUATION IRREGULAR [None]
